FAERS Safety Report 4437505-3 (Version None)
Quarter: 2004Q3

REPORT INFORMATION
  Report Type: 
  Country: None (occurrence: None)
  Receive Date: 20040831
  Receipt Date: 20040823
  Transmission Date: 20050211
  Serious: Yes (Hospitalization)
  Sender: FDA-Public Use
  Company Number: US-JNJFOC-20040808064

PATIENT
  Sex: Male
  Weight: 54.43 kg

DRUGS (3)
  1. REMACIDE [Suspect]
     Indication: CROHN'S DISEASE
     Route: 042
  2. 6-MP [Concomitant]
  3. PREDNISONE [Concomitant]

REACTIONS (1)
  - JAUNDICE ACHOLURIC [None]
